FAERS Safety Report 6095111-1 (Version None)
Quarter: 2009Q1

REPORT INFORMATION
  Report Type: 
  Country: None (occurrence: None)
  Receive Date: 20090227
  Receipt Date: 20080303
  Transmission Date: 20090719
  Serious: Yes (Other)
  Sender: FDA-Public Use
  Company Number: A0704379A

PATIENT
  Age: 68 Year
  Sex: Male
  Weight: 95.5 kg

DRUGS (7)
  1. LAMICTAL [Suspect]
     Indication: BIPOLAR DISORDER
     Dosage: 100MG PER DAY
     Route: 048
     Dates: start: 20071104
  2. DILTIAZEM [Concomitant]
  3. DIOVAN [Concomitant]
  4. AVODART [Concomitant]
  5. CARISOPRODOL [Concomitant]
  6. RISPERDAL [Concomitant]
  7. AMBIEN [Concomitant]

REACTIONS (1)
  - PRURITUS [None]
